FAERS Safety Report 10059666 (Version 1)
Quarter: 2014Q2

REPORT INFORMATION
  Report Type: Spontaneous
  Country: US (occurrence: None)
  Receive Date: 20140402
  Receipt Date: 20140402
  Transmission Date: 20141212
  Serious: Yes (Death)
  Sender: FDA-Public Use
  Company Number: SYM-2014-19205

PATIENT
  Sex: Female

DRUGS (12)
  1. XENAZINE [Suspect]
     Indication: HUNTINGTON^S DISEASE
     Route: 048
     Dates: start: 20130320
  2. EFFERVENT DENTURE CLEANSER (OTHERAGENTS FOR LOCVAL ORAL TREATMENT) (NULL) [Concomitant]
  3. DUCOLAX (BISACODYL) (BISACODYL) [Concomitant]
  4. FLEET (PARAFEN,LIQUID) (PARAFFIN, LIQUID) [Concomitant]
  5. LITHIUM CARBONATE (LITHIUM CARBONATE) [Concomitant]
  6. LORAZEPAM (LORAZEPAM) [Concomitant]
  7. MILK OF MAGNESIA (MAGNESIUM HYDROXIDE) (MAGNESIUM HYDROXIDE) [Concomitant]
  8. MIRTAZAPINE (MIRTAZAPINE) [Concomitant]
  9. RISPERIDONE (RISPERIDONE) [Concomitant]
  10. SENNA (SENNA ALEXANDRINA) (SENNA ALEXANDRINA) [Concomitant]
  11. SIMVASTATIN (SIMVASTATIN) [Concomitant]
  12. TYLENOL (PARACETAMOL) (PARACETAMOL) [Concomitant]

REACTIONS (1)
  - Death [None]
